FAERS Safety Report 6250700-6 (Version None)
Quarter: 2009Q2

REPORT INFORMATION
  Report Type: 
  Country: None (occurrence: None)
  Receive Date: 20090630
  Receipt Date: 20090623
  Transmission Date: 20091009
  Serious: Yes (Hospitalization)
  Sender: FDA-Public Use
  Company Number: US-PFIZER INC-2008155546

PATIENT
  Sex: Male
  Weight: 70.748 kg

DRUGS (7)
  1. MARAVIROC [Suspect]
     Indication: HIV INFECTION CDC GROUP I
     Dosage: 300 MG, 2X/DAY
     Route: 048
     Dates: start: 20060329
  2. ACCUPRIN [Concomitant]
     Dosage: UNK
     Route: 048
     Dates: start: 20060412
  3. BENADRYL [Concomitant]
     Dosage: UNK
     Route: 048
     Dates: start: 20061124
  4. LIPITOR [Concomitant]
     Dosage: UNK
     Route: 048
     Dates: start: 20061211
  5. NITROSTAT [Concomitant]
     Dosage: UNK
     Dates: start: 20061206
  6. QUININE [Concomitant]
     Dosage: UNK
     Route: 048
     Dates: start: 20060621
  7. ATENOLOL [Concomitant]
     Dosage: UNK
     Route: 048
     Dates: start: 20060412

REACTIONS (1)
  - GASTROENTERITIS [None]
